FAERS Safety Report 16952745 (Version 1)
Quarter: 2019Q4

REPORT INFORMATION
  Report Type: Spontaneous
  Country: US (occurrence: US)
  Receive Date: 20191023
  Receipt Date: 20191023
  Transmission Date: 20200122
  Serious: No
  Sender: FDA-Public Use
  Company Number: US-JNJFOC-20191031864

PATIENT
  Age: 8 Year
  Sex: Male

DRUGS (2)
  1. MOTRIN [Suspect]
     Active Substance: IBUPROFEN
     Indication: PYREXIA
     Dosage: 2 DOSAGES IN 3 HOURS APART
     Route: 065
     Dates: start: 20191021
  2. MOTRIN [Suspect]
     Active Substance: IBUPROFEN
     Indication: RHINORRHOEA

REACTIONS (1)
  - Extra dose administered [Unknown]

NARRATIVE: CASE EVENT DATE: 20191021
